FAERS Safety Report 16926263 (Version 2)
Quarter: 2019Q4

REPORT INFORMATION
  Report Type: Spontaneous
  Country: US (occurrence: US)
  Receive Date: 20191016
  Receipt Date: 20191101
  Transmission Date: 20200122
  Serious: Yes (Hospitalization)
  Sender: FDA-Public Use
  Company Number: US-CELGENEUS-USA-20191003926

PATIENT
  Sex: Female

DRUGS (4)
  1. MUPIROCIN. [Concomitant]
     Active Substance: MUPIROCIN
     Indication: INFECTION PROPHYLAXIS
     Route: 061
     Dates: start: 20190807, end: 20190824
  2. OTEZLA [Suspect]
     Active Substance: APREMILAST
     Indication: PSORIASIS
     Dosage: 60 MILLIGRAM
     Route: 048
     Dates: start: 20150512, end: 201810
  3. DOXYCYCLINE. [Concomitant]
     Active Substance: DOXYCYCLINE
     Indication: INFECTION PROPHYLAXIS
     Route: 048
     Dates: start: 20191010, end: 20191024
  4. OTEZLA [Suspect]
     Active Substance: APREMILAST
     Indication: PSORIASIS

REACTIONS (3)
  - Psoriasis [Not Recovered/Not Resolved]
  - Amnesia [Not Recovered/Not Resolved]
  - Dysplastic naevus [Recovered/Resolved]

NARRATIVE: CASE EVENT DATE: 2016
